FAERS Safety Report 25282569 (Version 3)
Quarter: 2025Q2

REPORT INFORMATION
  Report Type: Spontaneous
  Country: US (occurrence: US)
  Receive Date: 20250508
  Receipt Date: 20250616
  Transmission Date: 20250717
  Serious: No
  Sender: LUPIN
  Company Number: US-LUPIN PHARMACEUTICALS INC.-2025-03804

PATIENT
  Age: 62 Year
  Weight: 77.098 kg

DRUGS (1)
  1. TESTOSTERONE GEL 1.62% [Suspect]
     Active Substance: TESTOSTERONE
     Indication: Blood testosterone decreased
     Dosage: UNK, QD (1 PUMP A DAY)

REACTIONS (4)
  - Product administered at inappropriate site [Unknown]
  - Product with quality issue administered [Unknown]
  - Product physical issue [Unknown]
  - No adverse event [Unknown]
